FAERS Safety Report 5934940-9 (Version None)
Quarter: 2008Q4

REPORT INFORMATION
  Report Type: 
  Country: None (occurrence: None)
  Receive Date: 20081027
  Receipt Date: 20081015
  Transmission Date: 20090506
  Serious: Yes (Hospitalization)
  Sender: FDA-Public Use
  Company Number: GXKR2008GB09844

PATIENT
  Age: 20 Year
  Sex: Male

DRUGS (4)
  1. AZITHROMYCIN [Suspect]
  2. OMEPRAZOLE [Suspect]
  3. ANTIBIOTICS (NO INGREDIENTS/SUBSTANCES) [Suspect]
     Indication: PSEUDOMONAS INFECTION
     Dosage: INTRAVENOUS
     Route: 042
  4. STEROIDS NOS (NO INGREDIENTS/SUBSTANCES) [Suspect]
     Dosage: ORAL
     Route: 048

REACTIONS (8)
  - APPENDIX DISORDER [None]
  - CONSTIPATION [None]
  - DEHYDRATION [None]
  - HYPOTENSION [None]
  - PSEUDOMEMBRANOUS COLITIS [None]
  - PYREXIA [None]
  - TACHYCARDIA [None]
  - VOMITING [None]
